FAERS Safety Report 8188554-3 (Version None)
Quarter: 2012Q1

REPORT INFORMATION
  Report Type: 
  Country: None (occurrence: None)
  Receive Date: 20120306
  Receipt Date: 20120302
  Transmission Date: 20120608
  Serious: Yes (Life-Threatening, Hospitalization)
  Sender: FDA-Public Use
  Company Number: PHHY2012BE018269

PATIENT
  Age: 55 Year
  Sex: Female

DRUGS (6)
  1. LITHIUM CARBONATE [Concomitant]
  2. ABILIFY [Concomitant]
  3. DOMINAL [Concomitant]
  4. CLOZAPINE [Suspect]
     Indication: AFFECTIVE DISORDER
     Dosage: UNK
     Dates: start: 20120126, end: 20120223
  5. SEROQUEL [Concomitant]
  6. LORAZEPAM [Concomitant]

REACTIONS (10)
  - PULMONARY EMBOLISM [None]
  - RHABDOMYOLYSIS [None]
  - EPILEPSY [None]
  - DYSPNOEA [None]
  - ERYTHEMA MULTIFORME [None]
  - HYPOTENSION [None]
  - DIARRHOEA [None]
  - PERICARDIAL EFFUSION [None]
  - SYSTEMIC INFLAMMATORY RESPONSE SYNDROME [None]
  - BLOOD CREATINE PHOSPHOKINASE INCREASED [None]
